FAERS Safety Report 8304192-3 (Version None)
Quarter: 2012Q2

REPORT INFORMATION
  Report Type: 
  Country: None (occurrence: None)
  Receive Date: 20120423
  Receipt Date: 20120411
  Transmission Date: 20120825
  Serious: Yes (Other)
  Sender: FDA-Public Use
  Company Number: CA-JNJFOC-20120406312

PATIENT
  Sex: Female
  Weight: 102 kg

DRUGS (2)
  1. REMICADE [Suspect]
     Indication: COLITIS ULCERATIVE
     Route: 042
     Dates: start: 20110115
  2. APO-AMILZIDE [Concomitant]
     Route: 065

REACTIONS (6)
  - LOWER RESPIRATORY TRACT INFECTION [None]
  - HYPOKINESIA [None]
  - FIBROMYALGIA [None]
  - GENERALISED OEDEMA [None]
  - OEDEMA PERIPHERAL [None]
  - WEIGHT INCREASED [None]
